FAERS Safety Report 18230617 (Version 1)
Quarter: 2020Q3

REPORT INFORMATION
  Report Type: Spontaneous
  Country: BE (occurrence: BE)
  Receive Date: 20200904
  Receipt Date: 20200904
  Transmission Date: 20201103
  Serious: Yes (Other)
  Sender: FDA-Public Use
  Company Number: BE-AUROBINDO-AUR-APL-2020-045639

PATIENT
  Age: 12 Year
  Sex: Male

DRUGS (3)
  1. AMOXICILLIN+CLAVULANIC ACID [Suspect]
     Active Substance: AMOXICILLIN\CLAVULANIC ACID
     Indication: NECROTISING SOFT TISSUE INFECTION
     Dosage: 1 GRAM, 3 TIMES A DAY
     Route: 065
  2. CLINDAMYCIN. [Concomitant]
     Active Substance: CLINDAMYCIN
     Indication: NECROTISING SOFT TISSUE INFECTION
     Dosage: 40 MILLIGRAM/KILOGRAM
     Route: 065
  3. PENICILLIN NOS [Concomitant]
     Active Substance: PENICILLIN
     Indication: NECROTISING SOFT TISSUE INFECTION
     Dosage: 200000 INTERNATIONAL UNIT/KILOGRAM
     Route: 065

REACTIONS (1)
  - Drug ineffective [Unknown]
